FAERS Safety Report 7656460-6 (Version None)
Quarter: 2011Q3

REPORT INFORMATION
  Report Type: 
  Country: None (occurrence: None)
  Receive Date: 20110804
  Receipt Date: 20100614
  Transmission Date: 20111222
  Serious: No
  Sender: FDA-Public Use
  Company Number: US-BAUSCH-2010BL003256

PATIENT
  Age: 87 Year
  Sex: Female

DRUGS (3)
  1. OPCON-A [Suspect]
     Indication: EYE PRURITUS
     Route: 047
     Dates: start: 20100602
  2. CELEXA [Concomitant]
  3. ADVANCED EYE RELIEF/DRY EYE/REJUVENATION LUBRICANT EYE DROPS [Concomitant]

REACTIONS (2)
  - MYDRIASIS [None]
  - INSTILLATION SITE PAIN [None]
